FAERS Safety Report 5105131-9 (Version None)
Quarter: 2006Q3

REPORT INFORMATION
  Report Type: 
  Country: None (occurrence: None)
  Receive Date: 20060911
  Receipt Date: 20060827
  Transmission Date: 20061208
  Serious: Yes (Disabling, Other)
  Sender: FDA-Public Use
  Company Number: 2006105157

PATIENT
  Sex: Female
  Weight: 72.5755 kg

DRUGS (2)
  1. GEODON [Suspect]
     Indication: SCHIZOPHRENIA
     Dosage: 240 MG (80 M G, 3 IN 1 D)
     Dates: start: 20050901
  2. ACTOS [Concomitant]

REACTIONS (7)
  - BLOOD GLUCOSE INCREASED [None]
  - DIARRHOEA [None]
  - HYPERTENSION [None]
  - HYPOAESTHESIA [None]
  - NAUSEA [None]
  - RETINOPATHY [None]
  - WEIGHT DECREASED [None]
